FAERS Safety Report 19006644 (Version 1)
Quarter: 2021Q1

REPORT INFORMATION
  Report Type: Spontaneous
  Country: US (occurrence: US)
  Receive Date: 20210312
  Receipt Date: 20210312
  Transmission Date: 20210420
  Serious: Yes (Hospitalization)
  Sender: FDA-Public Use
  Company Number: None

PATIENT
  Age: 72 Year
  Sex: Male
  Weight: 56 kg

DRUGS (2)
  1. ROSUVASTATIN (ROSUVASTATIN CA 40MG TAB) [Suspect]
     Active Substance: ROSUVASTATIN CALCIUM
     Indication: HYPERLIPIDAEMIA
     Dosage: ?          OTHER FREQUENCY:PM;?
     Route: 048
     Dates: start: 20171129, end: 20201201
  2. SERTRALINE (SERTRALINE HCL 100MG TAB) [Suspect]
     Active Substance: SERTRALINE HYDROCHLORIDE
     Indication: DEPRESSION
     Dosage: ?          OTHER FREQUENCY:AM;?
     Route: 048
     Dates: start: 20171213, end: 20201201

REACTIONS (2)
  - Fall [None]
  - Hepatic enzyme increased [None]

NARRATIVE: CASE EVENT DATE: 20201231
